FAERS Safety Report 14146040 (Version 2)
Quarter: 2017Q4

REPORT INFORMATION
  Report Type: Report from Study
  Country: None (occurrence: US)
  Receive Date: 20171031
  Receipt Date: 20171108
  Transmission Date: 20180321
  Serious: Yes (Other)
  Sender: FDA-Public Use
  Company Number: US-ABBVIE-17P-163-2145634-00

PATIENT
  Age: 36 Year
  Sex: Female

DRUGS (2)
  1. MODERIBA [Suspect]
     Active Substance: RIBAVIRIN
     Indication: HEPATITIS C
     Dosage: 3 TABLETS IN THE AM AND 2 TABLETS IN THE PM
     Route: 048
     Dates: start: 20170927
  2. VIEKIRA PAK [Suspect]
     Active Substance: DASABUVIR\OMBITASVIR\PARITAPREVIR\RITONAVIR
     Indication: HEPATITIS C
     Route: 048
     Dates: start: 201710

REACTIONS (3)
  - Cholelithiasis [Unknown]
  - Pain [Recovered/Resolved]
  - Pelvi-ureteric obstruction [Not Recovered/Not Resolved]

NARRATIVE: CASE EVENT DATE: 201710
